FAERS Safety Report 4963115-5 (Version None)
Quarter: 2006Q2

REPORT INFORMATION
  Report Type: 
  Country: None (occurrence: None)
  Receive Date: 20060405
  Receipt Date: 20060327
  Transmission Date: 20061013
  Serious: Yes (Hospitalization)
  Sender: FDA-Public Use
  Company Number: ES-GLAXOSMITHKLINE-B0419016A

PATIENT
  Age: 85 Year
  Sex: Male

DRUGS (4)
  1. AMOXICILLIN + CLAVULANATE POTASSIUM [Suspect]
     Indication: UPPER RESPIRATORY TRACT INFECTION
     Route: 048
     Dates: start: 20060201, end: 20060212
  2. ADIRO [Concomitant]
     Indication: ESSENTIAL HYPERTENSION
     Dosage: 100MG PER DAY
     Route: 048
     Dates: start: 20050101
  3. OMEPRAZOLE [Concomitant]
     Indication: PROPHYLAXIS
     Dosage: 20MG PER DAY
     Route: 048
     Dates: start: 20050101, end: 20060214
  4. ENALAPRIL MALEATE AND HYDROCHLOROTHIAZIDE [Concomitant]
     Indication: ESSENTIAL HYPERTENSION
     Route: 048
     Dates: start: 20050101, end: 20060214

REACTIONS (1)
  - HEPATITIS CHOLESTATIC [None]
